FAERS Safety Report 6933977-0 (Version None)
Quarter: 2010Q3

REPORT INFORMATION
  Report Type: 
  Country: None (occurrence: None)
  Receive Date: 20100820
  Receipt Date: 20100816
  Transmission Date: 20110219
  Serious: Yes (Death)
  Sender: FDA-Public Use
  Company Number: JP-B.I. PHARMACEUTICALS,INC./RIDGEFIELD-2010-BP-08215NB

PATIENT
  Age: 66 Year
  Sex: Female

DRUGS (4)
  1. MICARDIS [Suspect]
     Indication: HYPERTENSION
     Dosage: 80 MG
     Route: 048
  2. ADALAT CC [Concomitant]
     Route: 048
  3. ALPHA-BLOCKER [Concomitant]
     Route: 048
  4. BETA-BLOCKER [Concomitant]
     Route: 048

REACTIONS (1)
  - DEATH [None]
